FAERS Safety Report 8591102-7 (Version None)
Quarter: 2012Q3

REPORT INFORMATION
  Report Type: 
  Country: None (occurrence: None)
  Receive Date: 20120813
  Receipt Date: 20120612
  Transmission Date: 20120928
  Serious: Yes (Life-Threatening, Hospitalization)
  Sender: FDA-Public Use
  Company Number: CHPA2012US014220

PATIENT
  Age: 45 Year
  Sex: Male

DRUGS (2)
  1. NICOTINE [Suspect]
     Dosage: UNK, UNK
     Route: 062
  2. NICOTINE [Suspect]
     Indication: SMOKING CESSATION THERAPY
     Dosage: 1 DF, QD
     Route: 062
     Dates: start: 20120609, end: 20120612

REACTIONS (11)
  - TREATMENT NONCOMPLIANCE [None]
  - SWELLING FACE [None]
  - PRODUCT ADHESION ISSUE [None]
  - STAPHYLOCOCCAL INFECTION [None]
  - DEHYDRATION [None]
  - LIP EXFOLIATION [None]
  - OVERDOSE [None]
  - FEELING ABNORMAL [None]
  - PNEUMONIA [None]
  - VISUAL IMPAIRMENT [None]
  - LIP SWELLING [None]
